FAERS Safety Report 12873743 (Version 2)
Quarter: 2017Q1

REPORT INFORMATION
  Report Type: Report from Study
  Country: GB (occurrence: GB)
  Receive Date: 20161021
  Receipt Date: 20170223
  Transmission Date: 20170428
  Serious: Yes (Life-Threatening, Other)
  Sender: FDA-Public Use
  Company Number: GB-INCYTE CORPORATION-2016IN006681

PATIENT
  Age: 94 Year
  Sex: Male
  Weight: 62 kg

DRUGS (4)
  1. JAKAVI [Suspect]
     Active Substance: RUXOLITINIB
     Indication: MYELOFIBROSIS
     Dosage: 10 MG, BID
     Route: 065
     Dates: start: 20120726, end: 20160106
  2. JAKAVI [Suspect]
     Active Substance: RUXOLITINIB
     Dosage: 10 MG, QD
     Route: 065
     Dates: start: 20160121, end: 20160204
  3. JAKAVI [Suspect]
     Active Substance: RUXOLITINIB
     Dosage: UNK
     Route: 065
     Dates: start: 20160525
  4. JAKAVI [Suspect]
     Active Substance: RUXOLITINIB
     Dosage: 10 MG, BID
     Route: 065
     Dates: start: 20160107, end: 20160120

REACTIONS (15)
  - Metastatic squamous cell carcinoma [Not Recovered/Not Resolved]
  - Second primary malignancy [Not Recovered/Not Resolved]
  - Splenomegaly [Unknown]
  - Mass [Unknown]
  - Pain [Unknown]
  - Hyperkeratosis [Unknown]
  - Neoplasm recurrence [Unknown]
  - Skin cancer [Unknown]
  - Quality of life decreased [Unknown]
  - Skin exfoliation [Unknown]
  - Myelofibrosis [Unknown]
  - Actinic keratosis [Unknown]
  - Skin lesion [Unknown]
  - Weight decreased [Unknown]
  - Basal cell carcinoma [Unknown]

NARRATIVE: CASE EVENT DATE: 20130705
